FAERS Safety Report 25794040 (Version 1)
Quarter: 2025Q3

REPORT INFORMATION
  Report Type: Spontaneous
  Country: EU (occurrence: EU)
  Receive Date: 20250912
  Receipt Date: 20250912
  Transmission Date: 20251021
  Serious: Yes (Other)
  Sender: VIIV
  Company Number: EU-VIIV HEALTHCARE ULC-IE2025115490

PATIENT
  Age: 60 Year
  Sex: Male

DRUGS (2)
  1. MARAVIROC [Suspect]
     Active Substance: MARAVIROC
     Indication: HIV infection
  2. EMTRICITABINE\RILPIVIRINE HYDROCHLORIDE\TENOFOVIR ALAFENAMIDE FUMARATE [Suspect]
     Active Substance: EMTRICITABINE\RILPIVIRINE HYDROCHLORIDE\TENOFOVIR ALAFENAMIDE FUMARATE
     Indication: HIV infection

REACTIONS (3)
  - Product dose omission in error [Unknown]
  - Blood HIV RNA increased [Unknown]
  - Treatment noncompliance [Unknown]
